FAERS Safety Report 4772460-8 (Version None)
Quarter: 2005Q3

REPORT INFORMATION
  Report Type: 
  Country: None (occurrence: None)
  Receive Date: 20050913
  Receipt Date: 20050913
  Transmission Date: 20060218
  Serious: Yes (Hospitalization, Other)
  Sender: FDA-Public Use
  Company Number: None

PATIENT
  Age: 65 Year
  Sex: Male
  Weight: 93.8946 kg

DRUGS (22)
  1. OXYCONTIN [Suspect]
     Dosage: ONE PO Q 8H-12H
     Route: 048
     Dates: start: 20050818
  2. ACIPHEX [Concomitant]
  3. PULMICORT [Concomitant]
  4. IPRATROPIUM BROMIDE [Concomitant]
  5. SEREEVENT [Concomitant]
  6. LOVENOX [Concomitant]
  7. FLONASE [Concomitant]
  8. SINGULAIR [Concomitant]
  9. LIPITOR [Concomitant]
  10. SYNTHYROID [Concomitant]
  11. ALLEGRA [Concomitant]
  12. LASIX [Concomitant]
  13. ALLOPURINOL [Concomitant]
  14. AMBIEN [Concomitant]
  15. CELEBREX [Concomitant]
  16. K+ [Concomitant]
  17. PREDNISONE [Concomitant]
  18. SKELAXIN [Concomitant]
  19. SANCTURA [Concomitant]
  20. MIACALCIN [Concomitant]
  21. QUNINE [Concomitant]
  22. NIZORAL CREAM [Concomitant]

REACTIONS (3)
  - DEPRESSED LEVEL OF CONSCIOUSNESS [None]
  - NAUSEA [None]
  - PAIN [None]
